FAERS Safety Report 7024436-8 (Version None)
Quarter: 2010Q4

REPORT INFORMATION
  Report Type: 
  Country: None (occurrence: None)
  Receive Date: 20101001
  Receipt Date: 20100921
  Transmission Date: 20110411
  Serious: Yes (Other)
  Sender: FDA-Public Use
  Company Number: BR-PFIZER INC-2010119740

PATIENT
  Age: 11 Year
  Sex: Male
  Weight: 54 kg

DRUGS (8)
  1. GEODON [Suspect]
     Indication: AUTISM
     Dosage: 40 MG, 1X/DAY
     Route: 048
     Dates: start: 20100101, end: 20100101
  2. GEODON [Suspect]
     Indication: PSYCHOTIC DISORDER
     Dosage: 30 MG, 1X/DAY
     Route: 048
     Dates: start: 20100101
  3. ALPRAZOLAM [Suspect]
     Dosage: UNK
     Dates: start: 20100101, end: 20100701
  4. RITALIN [Concomitant]
     Indication: ATTENTION DEFICIT/HYPERACTIVITY DISORDER
     Dosage: UNK
     Dates: start: 20100101
  5. FLUIMUCIL [Concomitant]
     Indication: COUGH
     Dosage: UNK
  6. SERETIDE [Concomitant]
     Indication: BRONCHITIS
     Dosage: UNK
  7. DOMPERIDONE [Concomitant]
     Indication: REFLUX OESOPHAGITIS
     Dosage: UNK
  8. OLCADIL [Concomitant]
     Dosage: UNK
     Dates: start: 20100701

REACTIONS (8)
  - AGITATION [None]
  - ASTHENIA [None]
  - DYSKINESIA [None]
  - DYSPHAGIA [None]
  - GAIT DISTURBANCE [None]
  - MUSCLE SPASMS [None]
  - PNEUMONIA VIRAL [None]
  - VOMITING [None]
